FAERS Safety Report 7069684-6 (Version None)
Quarter: 2010Q4

REPORT INFORMATION
  Report Type: 
  Country: None (occurrence: None)
  Receive Date: 20101028
  Receipt Date: 20100504
  Transmission Date: 20110411
  Serious: No
  Sender: FDA-Public Use
  Company Number: US-WYE-H14982910

PATIENT
  Sex: Female
  Weight: 79 kg

DRUGS (12)
  1. EFFEXOR [Suspect]
     Dosage: UNKNOWN DOSE, THREE TIMES DAILY
     Dates: start: 20070101, end: 20070101
  2. LOPRESSOR [Concomitant]
  3. LEXAPRO [Concomitant]
  4. CELEBREX [Concomitant]
  5. DICHLORALPHENAZONE/ISOMETHEPTENE MUCATE/PARACETAMOL [Concomitant]
  6. SEROQUEL [Concomitant]
  7. NEURONTIN [Concomitant]
  8. GLUCOPHAGE [Concomitant]
  9. PRILOSEC [Concomitant]
  10. LORCET-HD [Concomitant]
  11. TEGRETOL [Concomitant]
  12. CYMBALTA [Concomitant]

REACTIONS (3)
  - ANXIETY [None]
  - NAUSEA [None]
  - PANIC ATTACK [None]
